FAERS Safety Report 7363282-2 (Version None)
Quarter: 2011Q1

REPORT INFORMATION
  Report Type: 
  Country: None (occurrence: None)
  Receive Date: 20110321
  Receipt Date: 20110308
  Transmission Date: 20110831
  Serious: Yes (Hospitalization, Other)
  Sender: FDA-Public Use
  Company Number: US-JNJFOC-20101002677

PATIENT
  Sex: Female
  Weight: 56.3 kg

DRUGS (5)
  1. ADALIMUMAB [Concomitant]
  2. PREVACID [Concomitant]
  3. REMICADE [Suspect]
     Indication: INFLAMMATORY BOWEL DISEASE
     Dosage: 17TH INFUSION
     Route: 042
  4. AMITRIPTYLINE [Concomitant]
  5. LYRICA [Concomitant]

REACTIONS (1)
  - MIGRAINE [None]
